FAERS Safety Report 17774991 (Version 2)
Quarter: 2022Q2

REPORT INFORMATION
  Report Type: Report from Study
  Country: US (occurrence: US)
  Receive Date: 20200513
  Receipt Date: 20220613
  Transmission Date: 20220721
  Serious: Yes (Hospitalization, Other)
  Sender: FDA-Public Use
  Company Number: US-ACADIA PHARMACEUTICALS INC.-ACA-2020-PIM-000308

PATIENT
  Sex: Female

DRUGS (3)
  1. NUPLAZID [Suspect]
     Active Substance: PIMAVANSERIN TARTRATE
     Indication: Parkinson^s disease
     Dosage: 1.5 CAPSULE DAILY
     Route: 048
  2. NUPLAZID [Suspect]
     Active Substance: PIMAVANSERIN TARTRATE
     Dosage: 68 MILLIGRAM, QD
     Route: 048
     Dates: start: 20201207
  3. NUPLAZID [Suspect]
     Active Substance: PIMAVANSERIN TARTRATE
     Dosage: 34 MG QD
     Route: 048

REACTIONS (6)
  - Hepatic function abnormal [Unknown]
  - Urinary tract infection [Unknown]
  - Hyperglycaemia [Unknown]
  - Post-acute COVID-19 syndrome [Unknown]
  - Overdose [Unknown]
  - Overdose [Unknown]
